FAERS Safety Report 6276995-0 (Version None)
Quarter: 2009Q3

REPORT INFORMATION
  Report Type: 
  Country: None (occurrence: None)
  Receive Date: 20090722
  Receipt Date: 20081114
  Transmission Date: 20100115
  Serious: No
  Sender: FDA-Public Use
  Company Number: US-BRISTOL-MYERS SQUIBB COMPANY-14407282

PATIENT
  Age: 74 Year
  Sex: Male
  Weight: 94 kg

DRUGS (11)
  1. COUMADIN [Suspect]
     Indication: HEART VALVE REPLACEMENT
     Dosage: 1 DOSAGE FORM = 1 TAB, ALSO TAKEN 1/2 TAB 2 DAYS A WEEK.
     Dates: start: 19900101
  2. COREG [Concomitant]
  3. DETROL [Concomitant]
  4. PROTONIX [Concomitant]
  5. AMITRIPTYLINE [Concomitant]
  6. PRAVASTATIN [Concomitant]
  7. ASCORBIC ACID [Concomitant]
  8. VITAMIN B-12 [Concomitant]
  9. CALTRATE [Concomitant]
  10. FOLIC ACID [Concomitant]
  11. KADIAN [Concomitant]

REACTIONS (1)
  - INTERNATIONAL NORMALISED RATIO FLUCTUATION [None]
